FAERS Safety Report 10193065 (Version 1)
Quarter: 2014Q2

REPORT INFORMATION
  Report Type: Spontaneous
  Country: US (occurrence: US)
  Receive Date: 20140524
  Receipt Date: 20140524
  Transmission Date: 20141212
  Serious: No
  Sender: FDA-Public Use
  Company Number: US-009507513-1405USA010797

PATIENT
  Age: 23 Year
  Sex: Female

DRUGS (1)
  1. IMPLANON [Suspect]
     Indication: CONTRACEPTION
     Dosage: DOSE/FREQUENCY: EVERY 3 YEARS, 1 ROD
     Route: 059
     Dates: start: 20121018

REACTIONS (3)
  - Loss of libido [Unknown]
  - Menstruation irregular [Unknown]
  - Amenorrhoea [Unknown]
